FAERS Safety Report 15096174 (Version 2)
Quarter: 2018Q3

REPORT INFORMATION
  Report Type: Spontaneous
  Country: NL (occurrence: NL)
  Receive Date: 20180702
  Receipt Date: 20180711
  Transmission Date: 20181010
  Serious: Yes (Hospitalization, Other)
  Sender: FDA-Public Use
  Company Number: PHHY2018NL031045

PATIENT
  Age: 30 Year
  Sex: Female

DRUGS (1)
  1. IBUPROFEN. [Suspect]
     Active Substance: IBUPROFEN
     Indication: LIGAMENT SPRAIN
     Dosage: UNK
     Route: 065

REACTIONS (5)
  - Nasal congestion [Unknown]
  - Allergic respiratory disease [Unknown]
  - Wheezing [Unknown]
  - Type I hypersensitivity [Unknown]
  - Dyspnoea [Unknown]
